FAERS Safety Report 21464549 (Version 1)
Quarter: 2022Q4

REPORT INFORMATION
  Report Type: Report from Study
  Country: DE (occurrence: DE)
  Receive Date: 20221017
  Receipt Date: 20221017
  Transmission Date: 20230113
  Serious: Yes (Hospitalization)
  Sender: FDA-Public Use
  Company Number: DE-CELGENE-DEU-20200205897

PATIENT
  Age: 7 Decade
  Sex: Male
  Weight: 78.5 kg

DRUGS (15)
  1. LENALIDOMIDE [Suspect]
     Active Substance: LENALIDOMIDE
     Indication: Plasma cell myeloma
     Dosage: FREQUENCY TEXT: NOT PROVIDED?25 MILLIGRAM
     Route: 048
     Dates: start: 20191002, end: 20200216
  2. LENALIDOMIDE [Suspect]
     Active Substance: LENALIDOMIDE
     Dosage: FREQUENCY TEXT: NOT PROVIDED?25 MILLIGRAM
     Route: 048
     Dates: start: 202002, end: 20200221
  3. LENALIDOMIDE [Suspect]
     Active Substance: LENALIDOMIDE
     Dosage: FREQUENCY TEXT: NOT PROVIDED?25 MILLIGRAM
     Route: 048
     Dates: start: 2020, end: 20200311
  4. DEXAMETHASONE [Suspect]
     Active Substance: DEXAMETHASONE
     Indication: Plasma cell myeloma
     Dosage: FREQUENCY TEXT: NOT PROVIDED?8 MILLIGRAM
     Route: 042
     Dates: start: 20191001, end: 20200213
  5. DEXAMETHASONE [Suspect]
     Active Substance: DEXAMETHASONE
     Dosage: FREQUENCY TEXT: NOT PROVIDED?40 MILLIGRAM
     Route: 048
     Dates: start: 20191001, end: 20200213
  6. DEXAMETHASONE [Suspect]
     Active Substance: DEXAMETHASONE
     Dosage: FREQUENCY TEXT: NOT PROVIDED?8 MILLIGRAM
     Route: 042
     Dates: start: 2020, end: 20200311
  7. DEXAMETHASONE [Suspect]
     Active Substance: DEXAMETHASONE
     Dosage: FREQUENCY TEXT: NOT PROVIDED?8 MILLIGRAM
     Route: 042
     Dates: start: 2020, end: 20200317
  8. DEXAMETHASONE [Suspect]
     Active Substance: DEXAMETHASONE
     Dosage: FREQUENCY TEXT: NOT PROVIDED?8 MILLIGRAM
     Route: 042
     Dates: start: 20200324
  9. ELOTUZUMAB [Suspect]
     Active Substance: ELOTUZUMAB
     Indication: Plasma cell myeloma
     Dosage: FREQUENCY TEXT: NOT PROVIDED?77 MILLIGRAM
     Route: 042
     Dates: start: 20191001, end: 20200205
  10. ELOTUZUMAB [Suspect]
     Active Substance: ELOTUZUMAB
     Dosage: FREQUENCY TEXT: NOT PROVIDED?770 MILLIGRAM
     Route: 042
     Dates: start: 202002, end: 20200213
  11. ELOTUZUMAB [Suspect]
     Active Substance: ELOTUZUMAB
     Dosage: FREQUENCY TEXT: NOT PROVIDED?770 MILLIGRAM
     Route: 042
     Dates: start: 2020, end: 20200310
  12. CARFILZOMIB [Suspect]
     Active Substance: CARFILZOMIB
     Indication: Plasma cell myeloma
     Dosage: FREQUENCY TEXT: NOT PROVIDED?69.1 MILLIGRAM
     Route: 042
     Dates: start: 20191002, end: 20200213
  13. CARFILZOMIB [Suspect]
     Active Substance: CARFILZOMIB
     Dosage: FREQUENCY TEXT: NOT PROVIDED?69 MILLIGRAM
     Route: 042
     Dates: start: 2020, end: 20200311
  14. CARFILZOMIB [Suspect]
     Active Substance: CARFILZOMIB
     Dosage: FREQUENCY TEXT: NOT PROVIDED?69 MILLIGRAM
     Route: 042
     Dates: start: 2020, end: 20200317
  15. CARFILZOMIB [Suspect]
     Active Substance: CARFILZOMIB
     Dosage: FREQUENCY TEXT: NOT PROVIDED?69 MILLIGRAM
     Route: 042
     Dates: start: 20200324

REACTIONS (3)
  - Rhinovirus infection [Recovered/Resolved]
  - Pyrexia [Recovered/Resolved]
  - Rash [Recovered/Resolved]

NARRATIVE: CASE EVENT DATE: 20200216
